FAERS Safety Report 4585797-2 (Version None)
Quarter: 2005Q1

REPORT INFORMATION
  Report Type: 
  Country: None (occurrence: None)
  Receive Date: 20050215
  Receipt Date: 20050131
  Transmission Date: 20050727
  Serious: Yes (Other)
  Sender: FDA-Public Use
  Company Number: SAGL-ZLB/05/04/DEN

PATIENT
  Age: 62 Year
  Sex: Female
  Weight: 70 kg

DRUGS (7)
  1. SANDOGLOBULIN [Suspect]
     Indication: ASTHMA
     Dosage: 70 G, MONTHLY, I.V.
     Route: 042
     Dates: start: 20041012, end: 20041208
  2. THEO-DUR (THEOPHYLINE) [Concomitant]
  3. SEREVENT [Concomitant]
  4. FLIXOTIDE (FLUTICASONE PROPIONATE) [Concomitant]
  5. CETIRIZIN (CETIRIZINE) [Concomitant]
  6. BERODUAL (DUOVENT) [Concomitant]
  7. PREDNISONE [Concomitant]

REACTIONS (9)
  - ASTHMA [None]
  - CONDITION AGGRAVATED [None]
  - COUGH [None]
  - DISCOMFORT [None]
  - FLUSHING [None]
  - HEADACHE [None]
  - HYPERTENSION [None]
  - MALAISE [None]
  - SENSE OF OPPRESSION [None]
